FAERS Safety Report 17429183 (Version 1)
Quarter: 2020Q1

REPORT INFORMATION
  Report Type: Spontaneous
  Country: US (occurrence: US)
  Receive Date: 20200202
  Receipt Date: 20200202
  Transmission Date: 20200409
  Serious: Yes (Hospitalization)
  Sender: FDA-Public Use
  Company Number: None

PATIENT
  Age: 61 Year
  Sex: Female

DRUGS (1)
  1. AMBRISENTAN [Suspect]
     Active Substance: AMBRISENTAN
     Indication: PULMONARY ARTERIAL HYPERTENSION
     Route: 048
     Dates: start: 20200106

REACTIONS (6)
  - Flushing [None]
  - Joint swelling [None]
  - Heart rate increased [None]
  - Diarrhoea [None]
  - Pain in jaw [None]
  - Headache [None]

NARRATIVE: CASE EVENT DATE: 20200123
